FAERS Safety Report 14949307 (Version 2)
Quarter: 2018Q3

REPORT INFORMATION
  Report Type: Report from Study
  Country: US (occurrence: US)
  Receive Date: 20180529
  Receipt Date: 20180813
  Transmission Date: 20181010
  Serious: Yes (Hospitalization, Other)
  Sender: FDA-Public Use
  Company Number: US-ACTELION-A-US2018-172550

PATIENT
  Age: 63 Year
  Sex: Male

DRUGS (14)
  1. TYVASO [Concomitant]
     Active Substance: TREPROSTINIL
  2. LEVODOPA [Concomitant]
     Active Substance: LEVODOPA
  3. METFORMIN [Concomitant]
     Active Substance: METFORMIN HYDROCHLORIDE
  4. LISINOPRIL. [Concomitant]
     Active Substance: LISINOPRIL
  5. CARBIDOPA. [Concomitant]
     Active Substance: CARBIDOPA
  6. FUROSEMIDE. [Concomitant]
     Active Substance: FUROSEMIDE
  7. OPSUMIT [Suspect]
     Active Substance: MACITENTAN
     Indication: PULMONARY ARTERIAL HYPERTENSION
     Dosage: 10 MG, QD
     Route: 048
  8. SOFOSBUVIR W/VELPATASVIR [Suspect]
     Active Substance: SOFOSBUVIR\VELPATASVIR
     Indication: PRODUCT USED FOR UNKNOWN INDICATION
     Dosage: UNK
     Route: 065
  9. SILDENAFIL. [Concomitant]
     Active Substance: SILDENAFIL
  10. XIFAXAN [Concomitant]
     Active Substance: RIFAXIMIN
  11. HUMULIN N [Concomitant]
     Active Substance: INSULIN HUMAN
  12. SPIRONOLACTONE. [Concomitant]
     Active Substance: SPIRONOLACTONE
  13. ACTOS [Concomitant]
     Active Substance: PIOGLITAZONE HYDROCHLORIDE
  14. LACTULOSE. [Concomitant]
     Active Substance: LACTULOSE

REACTIONS (5)
  - Tremor [Unknown]
  - Hepatic cirrhosis [Unknown]
  - Ammonia increased [Unknown]
  - Balance disorder [Unknown]
  - Condition aggravated [Unknown]

NARRATIVE: CASE EVENT DATE: 2018
